FAERS Safety Report 7600129-0 (Version None)
Quarter: 2011Q3

REPORT INFORMATION
  Report Type: 
  Country: None (occurrence: None)
  Receive Date: 20110706
  Receipt Date: 20110706
  Transmission Date: 20111222
  Serious: Yes (Hospitalization)
  Sender: FDA-Public Use
  Company Number: None

PATIENT
  Sex: Female
  Weight: 67.3 kg

DRUGS (10)
  1. HYDROCODONE [Concomitant]
  2. LISINOPRIL AND HYDROCHLOROTHIAZIDE [Concomitant]
  3. LEVAQUIN [Concomitant]
  4. CARVEDILOL [Concomitant]
  5. NORVASC [Concomitant]
  6. TEMODAR [Suspect]
     Indication: GLIOBLASTOMA MULTIFORME
     Dosage: TEMODAR 140 MG DAILY PO
     Route: 048
     Dates: start: 20110425
  7. KEPPRA [Concomitant]
  8. LORAZEPAM [Concomitant]
  9. DEXAMETHASONE [Concomitant]
  10. FLEXERIL [Concomitant]

REACTIONS (3)
  - PANCYTOPENIA [None]
  - RECTAL HAEMORRHAGE [None]
  - ABDOMINAL PAIN [None]
